APPROVED DRUG PRODUCT: NEOSAR
Active Ingredient: CYCLOPHOSPHAMIDE
Strength: 500MG/VIAL
Dosage Form/Route: INJECTABLE;INJECTION
Application: A087442 | Product #003
Applicant: BEDFORD LABORATORIES DIV BEN VENUE LABORATORIES INC
Approved: Feb 16, 1982 | RLD: No | RS: No | Type: DISCN